FAERS Safety Report 24525131 (Version 1)
Quarter: 2024Q4

REPORT INFORMATION
  Report Type: Spontaneous
  Country: SK (occurrence: SK)
  Receive Date: 20241019
  Receipt Date: 20241019
  Transmission Date: 20250115
  Serious: Yes (Other)
  Sender: CELLTRION
  Company Number: SK-ABBVIE-5716770

PATIENT

DRUGS (1)
  1. ADALIMUMAB [Suspect]
     Active Substance: ADALIMUMAB
     Indication: Rheumatoid arthritis
     Dosage: 40 MG
     Route: 058
     Dates: start: 202312, end: 202402

REACTIONS (4)
  - Rheumatoid arthritis [Unknown]
  - Synovitis [Unknown]
  - Arthropathy [Unknown]
  - Musculoskeletal stiffness [Unknown]
